FAERS Safety Report 19665121 (Version 1)
Quarter: 2021Q3

REPORT INFORMATION
  Report Type: Other
  Country: FI (occurrence: FI)
  Receive Date: 20210806
  Receipt Date: 20210806
  Transmission Date: 20211014
  Serious: Yes (Congenital Anomaly)
  Sender: FDA-Public Use
  Company Number: FI-CELLTRION INC.-2021FI010103

PATIENT

DRUGS (4)
  1. FOLIC ACID. [Concomitant]
     Active Substance: FOLIC ACID
     Dosage: 5,MG,WEEKLY
  2. OXIKLORIN [Concomitant]
     Active Substance: HYDROXYCHLOROQUINE SULFATE
     Dosage: 1.8,G,WEEKLY
  3. LEVETIRACETAM. [Concomitant]
     Active Substance: LEVETIRACETAM
  4. INFLIXIMAB (UNKNOWN) [Suspect]
     Active Substance: INFLIXIMAB
     Route: 064

REACTIONS (8)
  - Renal aplasia [Recovered/Resolved with Sequelae]
  - Oesophageal atresia [Recovered/Resolved with Sequelae]
  - Talipes [Recovered/Resolved with Sequelae]
  - Maternal exposure before pregnancy [Recovered/Resolved with Sequelae]
  - Foetal exposure during pregnancy [Unknown]
  - Abortion induced [Recovered/Resolved with Sequelae]
  - VACTERL syndrome [Recovered/Resolved with Sequelae]
  - Congenital ureteric anomaly [Recovered/Resolved with Sequelae]
